FAERS Safety Report 19760532 (Version 3)
Quarter: 2021Q4

REPORT INFORMATION
  Report Type: Report from Study
  Country: US (occurrence: US)
  Receive Date: 20210830
  Receipt Date: 20211220
  Transmission Date: 20220303
  Serious: No
  Sender: FDA-Public Use
  Company Number: NVSC2021US195233

PATIENT
  Sex: Female

DRUGS (1)
  1. COSENTYX [Suspect]
     Active Substance: SECUKINUMAB
     Indication: Psoriatic arthropathy
     Dosage: 150 MG, UNKNOWN
     Route: 058

REACTIONS (6)
  - Fall [Unknown]
  - Contusion [Unknown]
  - Ligament sprain [Unknown]
  - Muscle strain [Unknown]
  - Pain [Recovering/Resolving]
  - Diarrhoea [Unknown]
